FAERS Safety Report 9287389 (Version 2)
Quarter: 2013Q2

REPORT INFORMATION
  Report Type: Spontaneous
  Country: KR (occurrence: KR)
  Receive Date: 20130514
  Receipt Date: 20130524
  Transmission Date: 20140414
  Serious: Yes (Other)
  Sender: FDA-Public Use
  Company Number: KR-009507513-1305KOR006450

PATIENT
  Age: 67 Year
  Sex: Female

DRUGS (2)
  1. ZOCOR TABLET 20 MG [Suspect]
     Route: 048
  2. ZOCOR TABLET 40 MG [Suspect]
     Dosage: DAILY DOSE 20 MG, 1/2 TABLET
     Route: 048

REACTIONS (3)
  - Large intestine operation [Unknown]
  - Wrong technique in drug usage process [Unknown]
  - Palpitations [Unknown]
